FAERS Safety Report 18537863 (Version 1)
Quarter: 2020Q4

REPORT INFORMATION
  Report Type: Report from Study
  Country: GB (occurrence: GB)
  Receive Date: 20201124
  Receipt Date: 20201124
  Transmission Date: 20210114
  Serious: Yes (Other)
  Sender: FDA-Public Use
  Company Number: GB-AUROBINDO-AUR-APL-2019-031871

PATIENT

DRUGS (2)
  1. TRANEXAMIC ACID SOLUTION FOR INJECTION [Suspect]
     Active Substance: TRANEXAMIC ACID
     Dosage: 1 GRAM((INTRAVENOUS INDUCTION DOSE OF 1 G)
     Route: 042
  2. TRANEXAMIC ACID SOLUTION FOR INJECTION [Suspect]
     Active Substance: TRANEXAMIC ACID
     Indication: PROCOAGULANT THERAPY
     Dosage: 7 MILLIGRAM/KILOGRAM, EVERY HOUR
     Route: 042

REACTIONS (1)
  - Seizure [Recovering/Resolving]
